FAERS Safety Report 25221649 (Version 3)
Quarter: 2025Q2

REPORT INFORMATION
  Report Type: Spontaneous
  Country: US (occurrence: US)
  Receive Date: 20250421
  Receipt Date: 20250626
  Transmission Date: 20250716
  Serious: No
  Sender: PFIZER
  Company Number: US-PFIZER INC-202500082653

PATIENT
  Age: 53 Year
  Sex: Female

DRUGS (14)
  1. IBRANCE [Suspect]
     Active Substance: PALBOCICLIB
     Route: 048
     Dates: start: 20250129
  2. ALBUTEROL AER HFA [Concomitant]
  3. FASLODEX [Concomitant]
     Active Substance: FULVESTRANT
  4. GLUCOSAMINE [Concomitant]
     Active Substance: GLUCOSAMINE
  5. METFORMIN [Concomitant]
     Active Substance: METFORMIN HYDROCHLORIDE
  6. LISINOPRIL [Concomitant]
     Active Substance: LISINOPRIL
  7. SYNTHROID [Concomitant]
     Active Substance: LEVOTHYROXINE SODIUM
  8. FOLIC ACID [Concomitant]
     Active Substance: FOLIC ACID
  9. TRULICITY [Concomitant]
     Active Substance: DULAGLUTIDE
  10. ATORVASTATIN [Concomitant]
     Active Substance: ATORVASTATIN
  11. FUROSEMIDE [Concomitant]
     Active Substance: FUROSEMIDE
  12. MONTELUKAST [Concomitant]
     Active Substance: MONTELUKAST
  13. BENZONATATE [Concomitant]
     Active Substance: BENZONATATE
  14. AZELASTINE [Concomitant]
     Active Substance: AZELASTINE

REACTIONS (5)
  - Diarrhoea [Not Recovered/Not Resolved]
  - Fatigue [Not Recovered/Not Resolved]
  - Sleep disorder [Not Recovered/Not Resolved]
  - Hypercalcaemia [Unknown]
  - Alanine aminotransferase increased [Unknown]

NARRATIVE: CASE EVENT DATE: 20250101
